FAERS Safety Report 6583077-7 (Version None)
Quarter: 2010Q1

REPORT INFORMATION
  Report Type: 
  Country: None (occurrence: None)
  Receive Date: 20100216
  Receipt Date: 20100201
  Transmission Date: 20100710
  Serious: Yes (Hospitalization)
  Sender: FDA-Public Use
  Company Number: FR-ROCHE-683527

PATIENT
  Sex: Female

DRUGS (4)
  1. BONIVA [Suspect]
     Indication: OSTEOPOROSIS
     Dosage: DRUG REPORTED AS BONVIVA TABLET
     Route: 048
     Dates: start: 20080101, end: 20091201
  2. FLUOROURACIL [Interacting]
     Indication: COLON CANCER
     Dosage: DRUG REPORTED AS FLUOROURACILE
     Route: 065
     Dates: start: 20090101, end: 20091102
  3. ELOXATIN [Interacting]
     Indication: COLON CANCER
     Route: 065
     Dates: start: 20090101, end: 20091102
  4. COKENZEN [Concomitant]

REACTIONS (3)
  - COLON CANCER [None]
  - DERMATOMYOSITIS [None]
  - DRUG INTERACTION [None]
